FAERS Safety Report 7688555-5 (Version None)
Quarter: 2011Q3

REPORT INFORMATION
  Report Type: 
  Country: None (occurrence: None)
  Receive Date: 20110817
  Receipt Date: 20110817
  Transmission Date: 20111222
  Serious: No
  Sender: FDA-Public Use
  Company Number: None

PATIENT
  Age: 76 Year
  Sex: Female
  Weight: 44.452 kg

DRUGS (2)
  1. LEVOFLOXACIN [Suspect]
     Indication: OEDEMA PERIPHERAL
     Dosage: 500 MG
     Route: 048
     Dates: start: 20110713, end: 20110716
  2. LEVOFLOXACIN [Suspect]
     Indication: TENDONITIS
     Dosage: 500 MG
     Route: 048
     Dates: start: 20110713, end: 20110716

REACTIONS (8)
  - ARTHRALGIA [None]
  - MUSCULOSKELETAL PAIN [None]
  - WALKING AID USER [None]
  - DRUG HYPERSENSITIVITY [None]
  - JOINT SWELLING [None]
  - WEIGHT BEARING DIFFICULTY [None]
  - OEDEMA PERIPHERAL [None]
  - PAIN IN EXTREMITY [None]
